FAERS Safety Report 7278092-4 (Version None)
Quarter: 2011Q1

REPORT INFORMATION
  Report Type: 
  Country: None (occurrence: None)
  Receive Date: 20110131
  Receipt Date: 20110121
  Transmission Date: 20110831
  Serious: Yes (Death, Hospitalization)
  Sender: FDA-Public Use
  Company Number: LEO-2010-00928

PATIENT
  Age: 83 Year
  Sex: Female

DRUGS (1)
  1. INNOHEP [Suspect]
     Indication: DEEP VEIN THROMBOSIS
     Dosage: (1 IN 1 D), SUBCUTANEOUS
     Route: 058
     Dates: start: 20100101

REACTIONS (2)
  - ARTERIAL RUPTURE [None]
  - HAEMORRHAGE [None]
